FAERS Safety Report 22014828 (Version 1)
Quarter: 2023Q1

REPORT INFORMATION
  Report Type: Spontaneous
  Country: US (occurrence: US)
  Receive Date: 20230221
  Receipt Date: 20230221
  Transmission Date: 20230418
  Serious: No
  Sender: FDA-Public Use
  Company Number: US-BRISTOL-MYERS SQUIBB COMPANY-2023-025274

PATIENT
  Age: 78 Year
  Sex: Female
  Weight: 66.59 kg

DRUGS (1)
  1. POMALYST [Suspect]
     Active Substance: POMALIDOMIDE
     Indication: Plasma cell myeloma
     Dosage: FREQUENCY: 3WEEKS, 1WEEK OFF
     Route: 048

REACTIONS (2)
  - Diarrhoea [Unknown]
  - Abdominal discomfort [Unknown]
